FAERS Safety Report 5357026-3 (Version None)
Quarter: 2007Q2

REPORT INFORMATION
  Report Type: 
  Country: None (occurrence: None)
  Receive Date: 20070612
  Receipt Date: 20070612
  Transmission Date: 20071010
  Serious: Yes (Other)
  Sender: FDA-Public Use
  Company Number: None

PATIENT
  Age: 88 Year
  Sex: Male
  Weight: 78.9259 kg

DRUGS (4)
  1. AVELOX [Suspect]
     Indication: PNEUMONIA
     Dosage: 400MG 1 DAILY PO
     Route: 048
     Dates: start: 20070521, end: 20070528
  2. NIFEDIPINE [Concomitant]
  3. LOVASTATIN [Concomitant]
  4. MAXZIDE [Concomitant]

REACTIONS (1)
  - ARTHRALGIA [None]
